FAERS Safety Report 6703860-4 (Version None)
Quarter: 2010Q2

REPORT INFORMATION
  Report Type: 
  Country: None (occurrence: None)
  Receive Date: 20100430
  Receipt Date: 20100420
  Transmission Date: 20101027
  Serious: Yes (Hospitalization)
  Sender: FDA-Public Use
  Company Number: FR-PFIZER INC-2010049413

PATIENT
  Age: 60 Year
  Sex: Female

DRUGS (11)
  1. ZYVOXID [Suspect]
     Indication: SEPSIS
     Dosage: 600 MG, 2X/DAY
     Dates: start: 20100306, end: 20100313
  2. IMIPENEM AND CILASTATIN [Suspect]
     Indication: SEPSIS
     Dosage: 500 MG, 4X/DAY
     Route: 042
     Dates: start: 20100302, end: 20100311
  3. CIPROFLOXACIN [Suspect]
     Indication: SEPSIS
     Dosage: 500 MG, 2X/DAY
     Route: 048
     Dates: start: 20100302, end: 20100313
  4. BACTRIM [Suspect]
     Indication: SEPSIS
     Dosage: 1 DOSE EVERY 6 HOURS
     Route: 042
     Dates: start: 20100303, end: 20100316
  5. CELLCEPT [Concomitant]
  6. LASIX [Concomitant]
  7. CORTANCYL [Concomitant]
  8. NEXIUM [Concomitant]
     Route: 048
  9. CACIT D3 [Concomitant]
  10. COLCHIMAX [Concomitant]
  11. POTASSIUM [Concomitant]

REACTIONS (1)
  - TONIC CLONIC MOVEMENTS [None]
